FAERS Safety Report 4959039-X (Version None)
Quarter: 2006Q1

REPORT INFORMATION
  Report Type: 
  Country: None (occurrence: None)
  Receive Date: 20060331
  Receipt Date: 20060320
  Transmission Date: 20060701
  Serious: Yes (Death, Hospitalization)
  Sender: FDA-Public Use
  Company Number: KR-BRISTOL-MYERS SQUIBB COMPANY-13322441

PATIENT
  Age: 81 Year
  Sex: Male

DRUGS (5)
  1. TAXOL [Suspect]
     Indication: GASTRIC CANCER
     Route: 042
     Dates: start: 20020502, end: 20020528
  2. CISPLATIN [Suspect]
     Indication: GASTRIC CANCER
     Dates: start: 20020502, end: 20020601
  3. FLUOROURACIL [Suspect]
     Indication: GASTRIC CANCER
     Dates: start: 20020502, end: 20020601
  4. METOCLOPRAMIDE [Concomitant]
     Dates: start: 20020302, end: 20020602
  5. GRANISETRON [Concomitant]
     Dates: start: 20020502, end: 20020602

REACTIONS (3)
  - CACHEXIA [None]
  - DYSPHAGIA [None]
  - WOUND INFECTION [None]
